FAERS Safety Report 16680841 (Version 17)
Quarter: 2020Q2

REPORT INFORMATION
  Report Type: Report from Study
  Country: US (occurrence: US)
  Receive Date: 20190808
  Receipt Date: 20200610
  Transmission Date: 20200713
  Serious: Yes (Hospitalization, Other)
  Sender: FDA-Public Use
  Company Number: US-ROCHE-2363601

PATIENT
  Age: 63 Year
  Sex: Female

DRUGS (19)
  1. CARBOPLATIN. [Suspect]
     Active Substance: CARBOPLATIN
     Indication: NON-SMALL CELL LUNG CANCER
     Dosage: ON 07/MAY/2019, SHE RECEIVED MOST RECENT DOSE OF 214MG/M2
     Route: 042
     Dates: start: 20190409
  2. MEROPENEM. [Concomitant]
     Active Substance: MEROPENEM
  3. DEXAMETHASONE. [Concomitant]
     Active Substance: DEXAMETHASONE
  4. ATEZOLIZUMAB. [Suspect]
     Active Substance: ATEZOLIZUMAB
     Indication: NON-SMALL CELL LUNG CANCER
     Dosage: ON 19/{AR/2019, SHE RECEIVED MOST RECENT DOSE OF ATEZOLIZUMAB.
     Route: 042
     Dates: start: 20190116
  5. PROCHLORPERAZINE. [Concomitant]
     Active Substance: PROCHLORPERAZINE
  6. LISINOPRIL. [Concomitant]
     Active Substance: LISINOPRIL
  7. ONDANSETRON [Concomitant]
     Active Substance: ONDANSETRON
  8. LIDOCAINE;PRILOCAINE [Concomitant]
     Route: 065
     Dates: start: 20190101
  9. METRONIDAZOLE. [Concomitant]
     Active Substance: METRONIDAZOLE
     Route: 065
     Dates: start: 20190628
  10. FAMOTIDINE. [Concomitant]
     Active Substance: FAMOTIDINE
  11. METRONIDAZOLE. [Concomitant]
     Active Substance: METRONIDAZOLE
     Route: 065
     Dates: start: 20190627
  12. PANTOPRAZOLE [Concomitant]
     Active Substance: PANTOPRAZOLE
     Route: 065
     Dates: start: 20190629
  13. OXYCODONE [Concomitant]
     Active Substance: OXYCODONE
  14. DIPHENHYDRAMINE;PARACETAMOL [Concomitant]
     Active Substance: ACETAMINOPHEN\DIPHENHYDRAMINE
  15. PACLITAXEL. [Suspect]
     Active Substance: PACLITAXEL
     Indication: NON-SMALL CELL LUNG CANCER
     Dosage: ON 14/MAY/2019, SHE RECEIVED MOST RECENT DOSE OF PACLITAXEL 50MG/M2
     Route: 042
     Dates: start: 20190409
  16. HYDROCHLOROTHIAZIDE. [Concomitant]
     Active Substance: HYDROCHLOROTHIAZIDE
  17. PALONOSETRON. [Concomitant]
     Active Substance: PALONOSETRON HYDROCHLORIDE
  18. SENOKOT [Concomitant]
     Active Substance: SENNOSIDES
  19. VANCOMYCIN [Concomitant]
     Active Substance: VANCOMYCIN

REACTIONS (4)
  - Cholecystitis acute [Recovered/Resolved]
  - Cholangitis acute [Recovered/Resolved]
  - Drug-induced liver injury [Recovered/Resolved]
  - Sepsis [Unknown]

NARRATIVE: CASE EVENT DATE: 20190614
